FAERS Safety Report 11279998 (Version 1)
Quarter: 2015Q3

REPORT INFORMATION
  Report Type: Spontaneous
  Country: US (occurrence: None)
  Receive Date: 20150716
  Receipt Date: 20150716
  Transmission Date: 20151125
  Serious: Yes (Life-Threatening, Hospitalization, Disabling)
  Sender: FDA-Public Use
  Company Number: None

PATIENT
  Age: 59 Year
  Sex: Female
  Weight: 37.65 kg

DRUGS (1)
  1. AUBAGIO [Suspect]
     Active Substance: TERIFLUNOMIDE
     Indication: MULTIPLE SCLEROSIS
     Route: 048
     Dates: start: 20130216, end: 20130722

REACTIONS (8)
  - Loss of consciousness [None]
  - Skin disorder [None]
  - Sinusitis [None]
  - Tooth fracture [None]
  - Hypertension [None]
  - Dyspnoea [None]
  - Multiple allergies [None]
  - Life expectancy shortened [None]
